FAERS Safety Report 7457301-2 (Version None)
Quarter: 2011Q2

REPORT INFORMATION
  Report Type: 
  Country: None (occurrence: None)
  Receive Date: 20110418
  Receipt Date: 20110418
  Transmission Date: 20111010
  Serious: Yes (Other)
  Sender: FDA-Public Use
  Company Number: None

PATIENT
  Age: 74 Year
  Sex: Female
  Weight: 99.7913 kg

DRUGS (4)
  1. PRADAXA [Suspect]
     Indication: ATRIAL FIBRILLATION
     Dosage: 150 MG BID P.O.
     Route: 048
     Dates: start: 20110315, end: 20110318
  2. PRADAXA [Suspect]
     Indication: ANTICOAGULANT THERAPY
     Dosage: 150 MG BID P.O.
     Route: 048
     Dates: start: 20110315, end: 20110318
  3. PRADAXA [Suspect]
     Indication: ATRIAL FIBRILLATION
     Dosage: 150 MG BID P.O.
     Route: 048
     Dates: start: 20110204, end: 20110306
  4. PRADAXA [Suspect]
     Indication: ANTICOAGULANT THERAPY
     Dosage: 150 MG BID P.O.
     Route: 048
     Dates: start: 20110204, end: 20110306

REACTIONS (1)
  - ARTHRALGIA [None]
